FAERS Safety Report 20515471 (Version 1)
Quarter: 2022Q1

REPORT INFORMATION
  Report Type: Spontaneous
  Country: US (occurrence: US)
  Receive Date: 20220224
  Receipt Date: 20220224
  Transmission Date: 20220423
  Serious: No
  Sender: FDA-Public Use
  Company Number: US-LANTHEUS-LMI-2021-00170

PATIENT
  Age: 64 Year
  Sex: Male

DRUGS (1)
  1. DEFINITY [Suspect]
     Active Substance: PERFLUTREN
     Indication: Echocardiogram
     Dosage: UNK (1.5 ML DEFINITY PREPARED IN 8.5 ML NORMAL SALINE)
     Dates: start: 20210317, end: 20210317

REACTIONS (1)
  - Pain in extremity [Recovered/Resolved]

NARRATIVE: CASE EVENT DATE: 20210317
